FAERS Safety Report 11373293 (Version 1)
Quarter: 2015Q3

REPORT INFORMATION
  Report Type: Spontaneous
  Country: US (occurrence: US)
  Receive Date: 20150811
  Receipt Date: 20150811
  Transmission Date: 20151125
  Serious: No
  Sender: FDA-Public Use
  Company Number: US-ELI_LILLY_AND_COMPANY-US201209004443

PATIENT
  Sex: Female
  Weight: 63.49 kg

DRUGS (3)
  1. LETAIRIS [Concomitant]
     Active Substance: AMBRISENTAN
     Dosage: 10 MG, QD
  2. ASPIRIN. [Concomitant]
     Active Substance: ASPIRIN
     Dosage: 81 MG, QD
  3. ADCIRCA [Suspect]
     Active Substance: TADALAFIL
     Indication: PULMONARY HYPERTENSION
     Dosage: 20 MG, QD
     Dates: start: 20120907, end: 20120911

REACTIONS (7)
  - Erythema [Unknown]
  - Wrong technique in product usage process [Unknown]
  - Ocular discomfort [Unknown]
  - Swelling [Unknown]
  - Rash [Unknown]
  - Headache [Unknown]
  - Axillary pain [Unknown]
